FAERS Safety Report 10168055 (Version 2)
Quarter: 2014Q2

REPORT INFORMATION
  Report Type: Spontaneous
  Country: CN (occurrence: CN)
  Receive Date: 20140512
  Receipt Date: 20140512
  Transmission Date: 20141212
  Serious: Yes (Life-Threatening, Hospitalization, Other)
  Sender: FDA-Public Use
  Company Number: PHHY2013CN080147

PATIENT
  Age: 60 Year
  Sex: Female

DRUGS (4)
  1. LESCOL [Suspect]
     Indication: LIPIDS ABNORMAL
     Dosage: 40 MG, QD
     Route: 048
     Dates: start: 20060616, end: 20130916
  2. LESCOL [Interacting]
     Indication: HYPERLIPIDAEMIA
  3. CYCLOSPORINE [Concomitant]
  4. HMG COA REDUCTASE INHIBITORS [Concomitant]

REACTIONS (5)
  - Renal failure [Recovering/Resolving]
  - Rhabdomyolysis [Recovering/Resolving]
  - Drug interaction [Unknown]
  - Muscular weakness [Recovering/Resolving]
  - Myalgia [Recovering/Resolving]
